FAERS Safety Report 5082601-3 (Version None)
Quarter: 2006Q3

REPORT INFORMATION
  Report Type: 
  Country: None (occurrence: None)
  Receive Date: 20060817
  Receipt Date: 20060505
  Transmission Date: 20061208
  Serious: Yes (Other)
  Sender: FDA-Public Use
  Company Number: US-SANOFI-SYNTHELABO-A03200602847

PATIENT
  Sex: Female
  Weight: 81.6 kg

DRUGS (1)
  1. AMBIEN [Suspect]
     Indication: INSOMNIA
     Dosage: 5-10MG
     Route: 048
     Dates: start: 19950301, end: 20060301

REACTIONS (3)
  - DIABETES MELLITUS [None]
  - EATING DISORDER [None]
  - SLEEP WALKING [None]
